FAERS Safety Report 11512186 (Version 1)
Quarter: 2015Q3

REPORT INFORMATION
  Report Type: Spontaneous
  Country: US (occurrence: None)
  Receive Date: 20150909
  Receipt Date: 20150909
  Transmission Date: 20151125
  Serious: Yes (Other)
  Sender: FDA-Public Use
  Company Number: 2015AP010515

PATIENT
  Age: 41 Year
  Sex: Female
  Weight: 84 kg

DRUGS (7)
  1. AMITRIPTYLINE (AMITRIPTYLINE) [Suspect]
     Active Substance: AMITRIPTYLINE
     Indication: DEPRESSION
  2. CETIRIZINE [Concomitant]
     Active Substance: CETIRIZINE HYDROCHLORIDE
  3. GABAPENTIN. [Concomitant]
     Active Substance: GABAPENTIN
  4. CYCLOBENZAPRINE (CYCLOBENZAPRINE) [Suspect]
     Active Substance: CYCLOBENZAPRINE
     Indication: MUSCLE SPASMS
  5. DULOXETINE HYDROCHLORIDE. [Suspect]
     Active Substance: DULOXETINE HYDROCHLORIDE
     Indication: DEPRESSION
  6. TRAMADOL HYDROCHLORIDE. [Suspect]
     Active Substance: TRAMADOL HYDROCHLORIDE
     Indication: PAIN
  7. CARISOPRODOL (CARISOPRODOL) [Suspect]
     Active Substance: CARISOPRODOL
     Indication: MUSCLE SPASMS

REACTIONS (1)
  - Serotonin syndrome [None]
